FAERS Safety Report 8370256-1 (Version None)
Quarter: 2012Q2

REPORT INFORMATION
  Report Type: 
  Country: None (occurrence: None)
  Receive Date: 20120518
  Receipt Date: 20120514
  Transmission Date: 20120825
  Serious: Yes (Other)
  Sender: FDA-Public Use
  Company Number: US-PFIZER INC-2012117386

PATIENT
  Sex: Female
  Weight: 70 kg

DRUGS (2)
  1. HYDROCHLOROTHIAZIDE [Concomitant]
     Indication: HYPERTENSION
     Dosage: 25 MG, DAILY
  2. ARTHROTEC [Suspect]
     Indication: ARTHRITIS
     Dosage: 200MCG/50MG, AS NEEDED
     Route: 048
     Dates: start: 20111201

REACTIONS (2)
  - EYE INFECTION [None]
  - DIARRHOEA [None]
